FAERS Safety Report 11814282 (Version 1)
Quarter: 2015Q4

REPORT INFORMATION
  Report Type: Spontaneous
  Country: US (occurrence: US)
  Receive Date: 20151209
  Receipt Date: 20151209
  Transmission Date: 20160305
  Serious: No
  Sender: FDA-Public Use
  Company Number: US-009507513-1511USA006194

PATIENT
  Age: 22 Year

DRUGS (1)
  1. PROPECIA [Suspect]
     Active Substance: FINASTERIDE
     Dosage: UNK
     Route: 048
     Dates: start: 20141201, end: 20141211

REACTIONS (6)
  - Loss of libido [Not Recovered/Not Resolved]
  - Hormone level abnormal [Unknown]
  - Self esteem decreased [Not Recovered/Not Resolved]
  - Adverse event [Unknown]
  - Psychiatric symptom [Not Recovered/Not Resolved]
  - Adverse event [Not Recovered/Not Resolved]

NARRATIVE: CASE EVENT DATE: 201412
